FAERS Safety Report 8402824 (Version 2)
Quarter: 2016Q1

REPORT INFORMATION
  Report Type: Spontaneous
  Country: US (occurrence: US)
  Receive Date: 20120213
  Receipt Date: 20160203
  Transmission Date: 20160526
  Serious: No
  Sender: FDA-Public Use
  Company Number: US-BRISTOL-MYERS SQUIBB COMPANY-15694086

PATIENT
  Sex: Female

DRUGS (1)
  1. LYSODREN [Suspect]
     Active Substance: MITOTANE
     Indication: EXPOSURE DURING PREGNANCY
     Route: 065

REACTIONS (2)
  - Occupational exposure to product [Unknown]
  - Maternal exposure during pregnancy [Unknown]
